FAERS Safety Report 8558853-1 (Version None)
Quarter: 2012Q3

REPORT INFORMATION
  Report Type: 
  Country: None (occurrence: None)
  Receive Date: 20120801
  Receipt Date: 20120725
  Transmission Date: 20120928
  Serious: Yes (Other)
  Sender: FDA-Public Use
  Company Number: PHHY2012AT065088

PATIENT
  Age: 75 Year
  Sex: Male

DRUGS (9)
  1. JANUVIA [Concomitant]
  2. LASIX [Concomitant]
  3. MARCUMAR [Concomitant]
  4. VALSARTAN  AND HYDROCHLOROTHIAZIDE [Suspect]
     Dosage: UNK
     Route: 048
     Dates: start: 20120716, end: 20120720
  5. DANCOR [Concomitant]
     Dosage: 10 MG, UNK
  6. EBRANTIL [Concomitant]
  7. NITRODERM [Concomitant]
  8. BISOPROLOL FUMARATE [Concomitant]
  9. EZETIMIBE [Concomitant]

REACTIONS (7)
  - HYPERSENSITIVITY [None]
  - PURPURA [None]
  - RESPIRATION ABNORMAL [None]
  - PRURITUS [None]
  - DIZZINESS [None]
  - VERTIGO [None]
  - RASH [None]
